FAERS Safety Report 5786102-6 (Version None)
Quarter: 2008Q2

REPORT INFORMATION
  Report Type: 
  Country: None (occurrence: None)
  Receive Date: 20080620
  Receipt Date: 20080620
  Transmission Date: 20081010
  Serious: No
  Sender: FDA-Public Use
  Company Number: None

PATIENT
  Sex: Female
  Weight: 82.7 kg

DRUGS (6)
  1. BEVACIZUMAB (RHUMAB VEGF) [Suspect]
     Dosage: 425 MG
     Dates: end: 20080529
  2. NORVASE [Concomitant]
  3. TENORETIC 100 [Concomitant]
  4. ENALAPRIL MALEATE [Concomitant]
  5. METFORMIN HCL [Concomitant]
  6. TENORETIC 100 [Concomitant]

REACTIONS (1)
  - BRONCHIOLITIS [None]
